FAERS Safety Report 17527219 (Version 4)
Quarter: 2021Q2

REPORT INFORMATION
  Report Type: Spontaneous
  Country: US (occurrence: US)
  Receive Date: 20200311
  Receipt Date: 20210611
  Transmission Date: 20210716
  Serious: No
  Sender: FDA-Public Use
  Company Number: US-PFIZER INC-2020106592

PATIENT
  Age: 54 Year
  Sex: Female

DRUGS (1)
  1. SOMAVERT [Suspect]
     Active Substance: PEGVISOMANT
     Indication: ACROMEGALY
     Dosage: 25 MG, 1X/DAY
     Route: 058
     Dates: start: 2017

REACTIONS (8)
  - Feeling hot [Unknown]
  - Myalgia [Unknown]
  - Intentional dose omission [Unknown]
  - Product dose omission issue [Unknown]
  - Insulin-like growth factor increased [Unknown]
  - Wrong technique in product usage process [Unknown]
  - Hypertrichosis [Unknown]
  - Weight increased [Unknown]

NARRATIVE: CASE EVENT DATE: 2020
